FAERS Safety Report 4404826-X (Version None)
Quarter: 2004Q3

REPORT INFORMATION
  Report Type: 
  Country: None (occurrence: None)
  Receive Date: 20040716
  Receipt Date: 20040615
  Transmission Date: 20050211
  Serious: Yes (Disabling)
  Sender: FDA-Public Use
  Company Number: 2004UW08381

PATIENT
  Age: 47 Year
  Sex: Male
  Weight: 95.2554 kg

DRUGS (1)
  1. XYLOCAINE [Suspect]
     Indication: CATARACT OPERATION
     Dosage: 20 MG DAILY

REACTIONS (2)
  - ANTERIOR CHAMBER DISORDER [None]
  - CORNEAL OEDEMA [None]
